FAERS Safety Report 9726929 (Version 2)
Quarter: 2013Q4

REPORT INFORMATION
  Report Type: Spontaneous
  Country: ES (occurrence: ES)
  Receive Date: 20131203
  Receipt Date: 20131203
  Transmission Date: 20140711
  Serious: Yes (Hospitalization, Other)
  Sender: FDA-Public Use
  Company Number: ES-BAYER-2013-140895

PATIENT
  Age: 68 Year
  Sex: Female

DRUGS (2)
  1. ULTRAVIST [Suspect]
     Indication: COMPUTERISED TOMOGRAM
     Dosage: DAILY DOSE 120 ML
     Route: 042
     Dates: start: 20131106, end: 20131106
  2. SALINE [Concomitant]
     Indication: COMPUTERISED TOMOGRAM
     Dosage: DAILY DOSE 30 ML
     Dates: start: 20131106, end: 20131106

REACTIONS (5)
  - Laryngeal oedema [Recovered/Resolved]
  - Pruritus generalised [Recovered/Resolved]
  - Hyperhidrosis [Recovered/Resolved]
  - Sneezing [Recovered/Resolved]
  - Hypotension [Recovered/Resolved]
